FAERS Safety Report 20429445 (Version 1)
Quarter: 2022Q1

REPORT INFORMATION
  Report Type: Spontaneous
  Country: US (occurrence: None)
  Receive Date: 20220203
  Receipt Date: 20220203
  Transmission Date: 20220423
  Serious: Yes (Death)
  Sender: FDA-Public Use
  Company Number: None

PATIENT
  Age: 70 Year
  Sex: Male
  Weight: 105.75 kg

DRUGS (13)
  1. REGEN-COV [Suspect]
     Active Substance: CASIRIVIMAB\IMDEVIMAB
     Indication: COVID-19
     Dosage: OTHER QUANTITY : 4 INJECTION(S);?
     Route: 030
     Dates: start: 20220124, end: 20220124
  2. ALLOPURINOL [Concomitant]
     Active Substance: ALLOPURINOL
  3. CELECOXIB [Concomitant]
     Active Substance: CELECOXIB
  4. HYDROCHLOROTHIAZIDE\LISINOPRIL [Concomitant]
     Active Substance: HYDROCHLOROTHIAZIDE\LISINOPRIL
  5. ATORVASTATIN [Concomitant]
     Active Substance: ATORVASTATIN
  6. PANTOPRAZOLE [Concomitant]
     Active Substance: PANTOPRAZOLE
  7. JANUVIA [Concomitant]
     Active Substance: SITAGLIPTIN PHOSPHATE
  8. LANTUS SOLOSTAR [Concomitant]
     Active Substance: INSULIN GLARGINE
  9. TIMOLOL [Concomitant]
     Active Substance: TIMOLOL
  10. LATANOPROST [Concomitant]
     Active Substance: LATANOPROST
  11. TRULICITY [Concomitant]
     Active Substance: DULAGLUTIDE
  12. ASPIRIN [Concomitant]
     Active Substance: ASPIRIN
  13. MUCINEX [Concomitant]
     Active Substance: GUAIFENESIN

REACTIONS (13)
  - Insomnia [None]
  - Decreased appetite [None]
  - Musculoskeletal chest pain [None]
  - Hypophagia [None]
  - Myocardial infarction [None]
  - Mental status changes [None]
  - Restlessness [None]
  - Confusional state [None]
  - Disorientation [None]
  - Delusion [None]
  - Blood pressure decreased [None]
  - Death [None]
  - Arterial occlusive disease [None]

NARRATIVE: CASE EVENT DATE: 20220128
